FAERS Safety Report 4298550-4 (Version None)
Quarter: 2004Q1

REPORT INFORMATION
  Report Type: 
  Country: None (occurrence: None)
  Receive Date: 20040218
  Receipt Date: 20040209
  Transmission Date: 20041129
  Serious: Yes (Other)
  Sender: FDA-Public Use
  Company Number: PHFR2004GB00964

PATIENT
  Age: 54 Year
  Sex: Male

DRUGS (2)
  1. LESCOL XL [Suspect]
     Indication: HYPERCHOLESTEROLAEMIA
     Dosage: 40 MG/DAY
     Route: 048
     Dates: start: 20031212, end: 20040112
  2. CO-TENIDONE [Concomitant]
     Indication: HYPERTENSION
     Dosage: 50 + 12.5MG/DAY
     Route: 048
     Dates: start: 19880101

REACTIONS (5)
  - PENILE SWELLING [None]
  - PRURITUS [None]
  - SCROTAL SWELLING [None]
  - SWELLING FACE [None]
  - SWOLLEN TONGUE [None]
